FAERS Safety Report 8609591-8 (Version None)
Quarter: 2012Q3

REPORT INFORMATION
  Report Type: 
  Country: None (occurrence: None)
  Receive Date: 20120821
  Receipt Date: 20120817
  Transmission Date: 20120928
  Serious: Yes (Other)
  Sender: FDA-Public Use
  Company Number: US-BAYER-2012-085322

PATIENT
  Sex: Female

DRUGS (1)
  1. PHILLIPS' MILK OF MAGNESIA LIQUID ORIGINAL [Suspect]
     Route: 048

REACTIONS (2)
  - HAEMORRHOIDS [None]
  - HAEMORRHAGE [None]
